FAERS Safety Report 16359569 (Version 2)
Quarter: 2019Q3

REPORT INFORMATION
  Report Type: Report from Study
  Country: CA (occurrence: CA)
  Receive Date: 20190528
  Receipt Date: 20190710
  Transmission Date: 20191004
  Serious: Yes (Hospitalization)
  Sender: FDA-Public Use
  Company Number: CA-NALPROPION PHARMACEUTICALS INC.-2019-007051

PATIENT

DRUGS (9)
  1. CONTRAVE [Suspect]
     Active Substance: BUPROPION HYDROCHLORIDE\NALTREXONE HYDROCHLORIDE
     Indication: WEIGHT CONTROL
     Dosage: 1 PILL AM (1 DOSAGE FORMS,1 IN 1 D)
     Route: 048
     Dates: start: 20190228, end: 20190306
  2. CONTRAVE [Suspect]
     Active Substance: BUPROPION HYDROCHLORIDE\NALTREXONE HYDROCHLORIDE
     Dosage: 2 PILL AM/1 PILL PM (2 IN 1 D)
     Route: 048
     Dates: start: 20190314, end: 20190320
  3. CONTRAVE [Suspect]
     Active Substance: BUPROPION HYDROCHLORIDE\NALTREXONE HYDROCHLORIDE
     Dosage: 3 PILLS A DAY, SECOND ATTEMPT
     Route: 048
     Dates: start: 20190530, end: 20190604
  4. CONTRAVE [Suspect]
     Active Substance: BUPROPION HYDROCHLORIDE\NALTREXONE HYDROCHLORIDE
     Dosage: 3 PILLS A DAY, THIRD ATTEMPT
     Route: 048
     Dates: start: 20190623
  5. CONTRAVE [Suspect]
     Active Substance: BUPROPION HYDROCHLORIDE\NALTREXONE HYDROCHLORIDE
     Dosage: 2 PILLS A DAY, SECOND ATTEMPT
     Route: 048
     Dates: start: 20190523, end: 20190529
  6. CONTRAVE [Suspect]
     Active Substance: BUPROPION HYDROCHLORIDE\NALTREXONE HYDROCHLORIDE
     Dosage: 1 PILL AM/1 PILL PM (1 DOSAGE FORMS,2 IN 1 D)
     Route: 048
     Dates: start: 20190307, end: 20190313
  7. CONTRAVE [Suspect]
     Active Substance: BUPROPION HYDROCHLORIDE\NALTREXONE HYDROCHLORIDE
     Dosage: 2 PILLS AM/2 PILLS PM (2 DOSAGE FORMS,2 IN 1 D)
     Route: 048
     Dates: start: 20190321, end: 20190327
  8. CONTRAVE [Suspect]
     Active Substance: BUPROPION HYDROCHLORIDE\NALTREXONE HYDROCHLORIDE
     Dosage: 2 PILLS AM/2 PILLS PM (2 DOSAGE FORMS,2 IN 1 D)
     Route: 048
     Dates: start: 20190330, end: 20190427
  9. CONTRAVE [Suspect]
     Active Substance: BUPROPION HYDROCHLORIDE\NALTREXONE HYDROCHLORIDE
     Dosage: 1 PILL AM (1 DOSAGE FORMS,1 IN 1 D), SECOND ATTEMPT
     Route: 048
     Dates: start: 20190512, end: 20190518

REACTIONS (8)
  - Polyp [Unknown]
  - Nausea [Unknown]
  - Diverticulitis [Unknown]
  - Rhinorrhoea [Unknown]
  - Abnormal dreams [Not Recovered/Not Resolved]
  - Drug titration error [Unknown]
  - Pruritus [Recovered/Resolved]
  - Weight increased [Unknown]

NARRATIVE: CASE EVENT DATE: 2019
